FAERS Safety Report 9522818 (Version 1)
Quarter: 2013Q1

REPORT INFORMATION
  Report Type: Spontaneous
  Country: US (occurrence: None)
  Receive Date: 20130305
  Receipt Date: 20130305
  Transmission Date: 20140127
  Serious: Yes (Hospitalization, Other)
  Sender: FDA-Public Use
  Company Number: 163-21880-12032377

PATIENT
  Age: 59 Year
  Sex: Male
  Weight: 86.18 kg

DRUGS (9)
  1. REVLIMID (LENALIDOMIDE) (15 MILLIGRAM, CAPSULES) [Suspect]
     Indication: PLASMA CELL MYELOMA
     Dosage: 15 MG, DAILY FOR 10 DAYS, PO
     Route: 048
     Dates: start: 20120211
  2. ASPIRIN (ACETYLSALICYLIC ACID) (UNKNOWN) (ACETYLSALICYLIC ACID) [Concomitant]
  3. DEXAMETHASONE (DEXAMETHASONE) (UNKNOWN) [Concomitant]
  4. METOPROLOL (METOPROLOL) (UNKNOWN) [Concomitant]
  5. PANTOPRAZOL (PANTOPRAZOLE SODIUM) (UNKNOWN) [Concomitant]
  6. RESTORIL (TEMAZEPAM) (UNKNOWN) [Concomitant]
  7. SALINE NASAL SPRAY (SODIUM CHLORIDE) (UNKNOWN) [Concomitant]
  8. VELCADE [Concomitant]
  9. VICODIN (VICODIN) (UNKNOWN) [Concomitant]

REACTIONS (2)
  - Dehydration [None]
  - Diarrhoea [None]
